FAERS Safety Report 8070602-2 (Version None)
Quarter: 2011Q4

REPORT INFORMATION
  Report Type: 
  Country: None (occurrence: None)
  Receive Date: 20111221
  Receipt Date: 20110929
  Transmission Date: 20120403
  Serious: Yes (Life-Threatening, Hospitalization)
  Sender: FDA-Public Use
  Company Number: PHEH2011US04832

PATIENT
  Age: 66 Year
  Sex: Male
  Weight: 127 kg

DRUGS (2)
  1. EXJADE [Suspect]
     Dosage: 2500 MG, DAILY, ORAL, 1500 MG, DAILY, ORAL
     Route: 048
     Dates: start: 20110803
  2. EXJADE [Suspect]
     Dosage: 2500 MG, DAILY, ORAL, 1500 MG, DAILY, ORAL
     Route: 048
     Dates: start: 20110822, end: 20110921

REACTIONS (3)
  - RENAL FAILURE ACUTE [None]
  - FLANK PAIN [None]
  - BLOOD CREATININE INCREASED [None]
